FAERS Safety Report 10025292 (Version 3)
Quarter: 2014Q2

REPORT INFORMATION
  Report Type: Spontaneous
  Country: US (occurrence: US)
  Receive Date: 20140320
  Receipt Date: 20140506
  Transmission Date: 20141212
  Serious: No
  Sender: FDA-Public Use
  Company Number: US-GLAXOSMITHKLINE-A1064899A

PATIENT
  Age: 87 Year
  Sex: Male

DRUGS (1)
  1. BREO ELLIPTA [Suspect]
     Indication: PRODUCT USED FOR UNKNOWN INDICATION
     Dosage: 1PUFF PER DAY
     Route: 055
     Dates: start: 20140129, end: 20140312

REACTIONS (2)
  - Drug ineffective [Unknown]
  - Product quality issue [Unknown]
